FAERS Safety Report 22050430 (Version 1)
Quarter: 2023Q1

REPORT INFORMATION
  Report Type: Spontaneous
  Country: US (occurrence: US)
  Receive Date: 20230301
  Receipt Date: 20230301
  Transmission Date: 20230418
  Serious: Yes (Hospitalization, Other)
  Sender: FDA-Public Use
  Company Number: None

PATIENT
  Age: 38 Year
  Sex: Male

DRUGS (3)
  1. ARIPIPRAZOLE [Suspect]
     Active Substance: ARIPIPRAZOLE
     Indication: Bipolar disorder
     Route: 065
  2. FLUOXETINE [Suspect]
     Active Substance: FLUOXETINE HYDROCHLORIDE
     Indication: Bipolar disorder
     Route: 065
  3. N-METHYLCYCLAZODONE [Suspect]
     Active Substance: N-METHYLCYCLAZODONE
     Indication: Attention deficit hyperactivity disorder
     Route: 065

REACTIONS (6)
  - Psychomotor hyperactivity [Recovered/Resolved]
  - Rhabdomyolysis [Recovered/Resolved]
  - Sinus tachycardia [Recovered/Resolved]
  - Electrocardiogram QRS complex prolonged [Recovered/Resolved]
  - Movement disorder [Recovered/Resolved]
  - Drug interaction [Unknown]
